FAERS Safety Report 25327044 (Version 1)
Quarter: 2025Q2

REPORT INFORMATION
  Report Type: Spontaneous
  Country: FR (occurrence: FR)
  Receive Date: 20250517
  Receipt Date: 20250517
  Transmission Date: 20250716
  Serious: Yes (Life-Threatening, Hospitalization)
  Sender: ACCORD
  Company Number: None

PATIENT
  Age: 67 Year
  Sex: Male
  Weight: 54.5 kg

DRUGS (1)
  1. FLUOROURACIL [Suspect]
     Active Substance: FLUOROURACIL
     Indication: Anal squamous cell carcinoma
     Dates: start: 20240214, end: 20250328

REACTIONS (1)
  - Congenital aplasia [Recovering/Resolving]

NARRATIVE: CASE EVENT DATE: 20250402
